FAERS Safety Report 8259816-6 (Version None)
Quarter: 2012Q2

REPORT INFORMATION
  Report Type: 
  Country: None (occurrence: None)
  Receive Date: 20120403
  Receipt Date: 20120301
  Transmission Date: 20120825
  Serious: Yes (Hospitalization)
  Sender: FDA-Public Use
  Company Number: DL2012-0180

PATIENT
  Age: 40 Year
  Sex: Female

DRUGS (3)
  1. MISOPROSTOL [Suspect]
     Dosage: 800 MCG, BUCCAL
     Route: 002
     Dates: start: 20120204
  2. MIFEPRISTONE (MIFEPREX) [Suspect]
     Indication: ABORTION INDUCED
     Dosage: 200 MG, ORAL
     Route: 048
     Dates: start: 20120203
  3. DOXYCYCLINE [Concomitant]

REACTIONS (2)
  - ABORTION INCOMPLETE [None]
  - MUSCLE SPASMS [None]
